FAERS Safety Report 4836508-4 (Version None)
Quarter: 2005Q4

REPORT INFORMATION
  Report Type: 
  Country: None (occurrence: None)
  Receive Date: 20051123
  Receipt Date: 20051027
  Transmission Date: 20060501
  Serious: Yes (Other)
  Sender: FDA-Public Use
  Company Number: GB-GLAXOSMITHKLINE-B0398577A

PATIENT
  Age: 39 Year
  Sex: Male

DRUGS (2)
  1. LAMICTAL [Suspect]
     Indication: COMPLEX PARTIAL SEIZURES
     Dosage: 400MG PER DAY
     Route: 048
  2. NO CONCURRENT MEDICATION [Concomitant]

REACTIONS (8)
  - ANTICONVULSANT DRUG LEVEL ABOVE THERAPEUTIC [None]
  - DEPRESSED LEVEL OF CONSCIOUSNESS [None]
  - HOT FLUSH [None]
  - INCORRECT DOSE ADMINISTERED [None]
  - INTENTIONAL OVERDOSE [None]
  - MEMORY IMPAIRMENT [None]
  - PARANOIA [None]
  - TREMOR [None]
